FAERS Safety Report 5814164-6 (Version None)
Quarter: 2008Q3

REPORT INFORMATION
  Report Type: 
  Country: None (occurrence: None)
  Receive Date: 20080715
  Receipt Date: 20080630
  Transmission Date: 20090109
  Serious: Yes (Hospitalization)
  Sender: FDA-Public Use
  Company Number: 14614

PATIENT
  Age: 74 Year
  Sex: Female

DRUGS (1)
  1. MORPHINE SULFATE ER 30 TABLETS (ETHEX CORPORATION) [Suspect]
     Dosage: 30-60MG BID ORALLY
     Route: 048

REACTIONS (5)
  - FEELING ABNORMAL [None]
  - MOVEMENT DISORDER [None]
  - OVERDOSE [None]
  - PHARMACEUTICAL PRODUCT COMPLAINT [None]
  - SOMNOLENCE [None]
